FAERS Safety Report 5916860-9 (Version None)
Quarter: 2008Q4

REPORT INFORMATION
  Report Type: 
  Country: None (occurrence: None)
  Receive Date: 20081013
  Receipt Date: 20081006
  Transmission Date: 20090506
  Serious: Yes (Other)
  Sender: FDA-Public Use
  Company Number: US-ASTRAZENECA-2008UW21740

PATIENT
  Age: 75 Year
  Sex: Male
  Weight: 68 kg

DRUGS (2)
  1. ATACAND [Suspect]
     Indication: HYPERTENSION
     Route: 048
     Dates: start: 20060101, end: 20080801
  2. ATACAND [Suspect]
     Route: 048
     Dates: start: 20080901

REACTIONS (6)
  - ANHEDONIA [None]
  - ANOREXIA [None]
  - DYSPEPSIA [None]
  - FATIGUE [None]
  - NAUSEA [None]
  - WEIGHT DECREASED [None]
